FAERS Safety Report 8897946 (Version 1)
Quarter: 2012Q4

REPORT INFORMATION
  Report Type: 
  Country: US (occurrence: US)
  Receive Date: 20121108
  Receipt Date: 20121108
  Transmission Date: 20130627
  Serious: No
  Sender: FDA-Public Use
  Company Number: US-AMGEN-USASP2012032976

PATIENT
  Age: 76 Year
  Sex: Female
  Weight: 72.56 kg

DRUGS (6)
  1. ENBREL [Suspect]
     Indication: PRODUCT USED FOR UNKNOWN INDICATION
     Dosage: 50 mg, qwk
     Route: 058
  2. EVISTA [Concomitant]
     Dosage: 60 mg, UNK
  3. TREXALL [Concomitant]
     Dosage: 5 mg, UNK
  4. VITAMIN D /00107901/ [Concomitant]
     Dosage: 1000 IU, UNK
  5. CALCIUM [Concomitant]
  6. FOLIC ACID [Concomitant]

REACTIONS (3)
  - Respiratory tract congestion [Recovered/Resolved]
  - Cough [Recovered/Resolved]
  - Upper respiratory tract infection [Recovered/Resolved]
